FAERS Safety Report 5874493-7 (Version None)
Quarter: 2008Q3

REPORT INFORMATION
  Report Type: 
  Country: None (occurrence: None)
  Receive Date: 20080909
  Receipt Date: 20080828
  Transmission Date: 20090109
  Serious: Yes (Other)
  Sender: FDA-Public Use
  Company Number: PHHY2008DE19803

PATIENT
  Sex: Female

DRUGS (2)
  1. VOLTAREN [Suspect]
     Indication: POSTOPERATIVE ANALGESIA
     Dosage: 75 MG/DAY
  2. CLINDAMYCIN HCL [Suspect]
     Indication: PROPHYLAXIS
     Dosage: 900 MG/DAY

REACTIONS (5)
  - HEPATIC LESION [None]
  - JAUNDICE [None]
  - LIVER INJURY [None]
  - NAUSEA [None]
  - VOMITING [None]
